FAERS Safety Report 23734644 (Version 1)
Quarter: 2024Q2

REPORT INFORMATION
  Report Type: Report from Study
  Country: ES (occurrence: ES)
  Receive Date: 20240412
  Receipt Date: 20240412
  Transmission Date: 20240716
  Serious: Yes (Other)
  Sender: FDA-Public Use
  Company Number: ES-TEVA-VS-3143186

PATIENT
  Age: 53 Year
  Sex: Female

DRUGS (5)
  1. TERIPARATIDE [Suspect]
     Active Substance: TERIPARATIDE
     Indication: Osteoporosis
     Dosage: 20MCG/80MCL
     Route: 065
     Dates: start: 20230223
  2. GLUTAMINE [Concomitant]
     Active Substance: GLUTAMINE
     Indication: Food intolerance
     Dosage: A WHILE AGO
  3. VITAMIN B6 [Concomitant]
     Active Substance: PYRIDOXINE HYDROCHLORIDE
     Indication: Food intolerance
     Dosage: START DATE: A WHILE AGO
  4. CALCIUM\VITAMIN D [Concomitant]
     Active Substance: CALCIUM\VITAMIN D
     Indication: Osteoporosis
     Dosage: START DATE: A WHILE AGO
  5. Collagen and magnesium [Concomitant]
     Indication: Bone pain
     Dosage: START DATE: 2 WEEKS AGO
     Dates: start: 202402

REACTIONS (5)
  - Myalgia [Unknown]
  - Product dose omission issue [Unknown]
  - Post-traumatic neck syndrome [Unknown]
  - Intervertebral disc protrusion [Unknown]
  - Back pain [Unknown]

NARRATIVE: CASE EVENT DATE: 20231001
